FAERS Safety Report 4902303-0 (Version None)
Quarter: 2006Q1

REPORT INFORMATION
  Report Type: 
  Country: None (occurrence: None)
  Receive Date: 20060207
  Receipt Date: 20060131
  Transmission Date: 20060701
  Serious: Yes (Hospitalization)
  Sender: FDA-Public Use
  Company Number: FR-BRACCO-BRO-009819

PATIENT
  Sex: Male

DRUGS (1)
  1. MULTIHANCE [Suspect]
     Route: 042
     Dates: start: 20060117, end: 20060117

REACTIONS (1)
  - ANGIONEUROTIC OEDEMA [None]
